FAERS Safety Report 23731914 (Version 1)
Quarter: 2024Q2

REPORT INFORMATION
  Report Type: Spontaneous
  Country: US (occurrence: None)
  Receive Date: 20240410
  Receipt Date: 20240410
  Transmission Date: 20240716
  Serious: No
  Sender: FDA-Public Use
  Company Number: None

PATIENT
  Age: 32 Year
  Sex: Female
  Weight: 81.38 kg

DRUGS (2)
  1. LENVIMA [Suspect]
     Active Substance: LENVATINIB
     Indication: Metastasis
     Dosage: 14 MG DAILY ORAL ?
     Route: 048
     Dates: start: 20240311, end: 20240410
  2. LEVOTHYROXINE [Concomitant]
     Active Substance: LEVOTHYROXINE\LEVOTHYROXINE SODIUM

REACTIONS (7)
  - Nausea [None]
  - Diarrhoea [None]
  - Fatigue [None]
  - Genital rash [None]
  - Stomatitis [None]
  - Stomatitis [None]
  - Ear pain [None]

NARRATIVE: CASE EVENT DATE: 20240410
